FAERS Safety Report 4646105-1 (Version None)
Quarter: 2005Q2

REPORT INFORMATION
  Report Type: 
  Country: None (occurrence: None)
  Receive Date: 20050425
  Receipt Date: 20050412
  Transmission Date: 20051028
  Serious: Yes (Life-Threatening, Other)
  Sender: FDA-Public Use
  Company Number: HQWYE108127OCT04

PATIENT
  Age: 70 Year
  Sex: Male

DRUGS (5)
  1. CORDARONE [Suspect]
     Indication: ATRIAL FIBRILLATION
     Dosage: 200 MG 1X PER 1 DAY ORAL
     Route: 048
     Dates: start: 20040901, end: 20040919
  2. CARDIRENE (ACETYLSALICYLATE LYSINE) [Concomitant]
  3. OMEPRAZOLE [Concomitant]
  4. METOPROLOL TARTRATE [Concomitant]
  5. ENAPREN (ENALAPRIL MALEATE) [Concomitant]

REACTIONS (2)
  - HYPERTHYROIDISM [None]
  - PULMONARY OEDEMA [None]
